FAERS Safety Report 7991253-1 (Version None)
Quarter: 2011Q4

REPORT INFORMATION
  Report Type: 
  Country: None (occurrence: None)
  Receive Date: 20111219
  Receipt Date: 20111206
  Transmission Date: 20120403
  Serious: Yes (Other)
  Sender: FDA-Public Use
  Company Number: CH-GLAXOSMITHKLINE-B0769848A

PATIENT
  Age: 11 Month
  Sex: Male

DRUGS (5)
  1. MUTAGRIP [Concomitant]
     Route: 064
     Dates: start: 20101119, end: 20101119
  2. KEPPRA [Suspect]
     Indication: EPILEPSY
     Dosage: 250MG THREE TIMES PER DAY
     Route: 064
  3. LAMICTAL [Suspect]
     Indication: EPILEPSY
     Dosage: 400MG PER DAY
     Route: 064
  4. FOLIC ACID [Concomitant]
     Dosage: 5MG PER DAY
     Route: 064
  5. PROGESTERONE [Concomitant]
     Route: 064
     Dates: start: 20101229

REACTIONS (2)
  - ANTEPARTUM HAEMORRHAGE [None]
  - FOETAL EXPOSURE DURING PREGNANCY [None]
